FAERS Safety Report 8553520-2 (Version None)
Quarter: 2012Q3

REPORT INFORMATION
  Report Type: 
  Country: None (occurrence: None)
  Receive Date: 20120731
  Receipt Date: 20120727
  Transmission Date: 20120928
  Serious: Yes (Death, Hospitalization)
  Sender: FDA-Public Use
  Company Number: PL-CELGENEUS-129-CCAZA-12063907

PATIENT
  Sex: Male
  Weight: 75 kg

DRUGS (3)
  1. PLATELETS [Concomitant]
     Indication: ACUTE MYELOID LEUKAEMIA
     Route: 065
  2. AZACITIDINE [Suspect]
     Indication: ACUTE MYELOID LEUKAEMIA
     Route: 065
     Dates: start: 20120202, end: 20120208
  3. RED BLOOD CELLS [Concomitant]
     Indication: ACUTE MYELOID LEUKAEMIA
     Route: 065

REACTIONS (1)
  - PNEUMONIA [None]
